FAERS Safety Report 4440511-6 (Version None)
Quarter: 2004Q3

REPORT INFORMATION
  Report Type: 
  Country: None (occurrence: None)
  Receive Date: 20040903
  Receipt Date: 20040826
  Transmission Date: 20050211
  Serious: Yes (Other)
  Sender: FDA-Public Use
  Company Number: PHBS2004US11398

PATIENT
  Age: 16 Year
  Sex: Female

DRUGS (8)
  1. BACLOFEN [Suspect]
     Indication: HEADACHE
     Route: 065
  2. TIZANIDINE HYDROCHLORIDE [Suspect]
     Indication: HEADACHE
     Route: 065
  3. NORTRIPTYLINE HYDROCHLORIDE [Suspect]
     Indication: HEADACHE
     Route: 065
  4. GABAPENTIN [Suspect]
     Indication: HEADACHE
     Route: 065
  5. PHENELZINE [Suspect]
     Indication: HEADACHE
     Route: 065
  6. KETOROLAC [Suspect]
     Indication: HEADACHE
     Route: 065
  7. BETHANECHOL [Suspect]
     Indication: HEADACHE
     Route: 065
  8. OLANZAPINE [Suspect]
     Indication: HEADACHE
     Route: 065

REACTIONS (3)
  - DEPRESSED LEVEL OF CONSCIOUSNESS [None]
  - DIZZINESS [None]
  - TACHYCARDIA [None]
